FAERS Safety Report 10885821 (Version 1)
Quarter: 2015Q1

REPORT INFORMATION
  Report Type: Spontaneous
  Country: US (occurrence: US)
  Receive Date: 20150304
  Receipt Date: 20150304
  Transmission Date: 20150721
  Serious: Yes (Hospitalization)
  Sender: FDA-Public Use
  Company Number: US-PERRIGO-15US002373

PATIENT
  Age: 50 Year
  Sex: Male

DRUGS (3)
  1. ANTIHYPERTENSIVES [Concomitant]
     Active Substance: UNSPECIFIED INGREDIENT
     Indication: HYPERTENSION
     Dosage: UNK
     Route: 065
  2. TESTOSTERONE CYPIONATE USP RX 200 MG/ML 9Z8 [Suspect]
     Active Substance: TESTOSTERONE CYPIONATE
     Indication: BLOOD TESTOSTERONE DECREASED
     Dosage: 200 MG, APPROXIMATELY EVERY 1 TO 3 WEEKS
     Route: 030
     Dates: start: 201203, end: 201312
  3. DEPO TESTOSTERONE [Suspect]
     Active Substance: TESTOSTERONE
     Indication: BLOOD TESTOSTERONE
     Dosage: 200 MG, APPROXIMATELY EVERY 1 TO 3 WEEKS
     Route: 030
     Dates: start: 201203, end: 201312

REACTIONS (6)
  - Venous occlusion [Unknown]
  - Dyspnoea [Unknown]
  - Pulmonary embolism [Unknown]
  - Deep vein thrombosis [Unknown]
  - Heart rate increased [Unknown]
  - Oedema peripheral [Unknown]

NARRATIVE: CASE EVENT DATE: 20140104
